FAERS Safety Report 7065042-9 (Version None)
Quarter: 2010Q4

REPORT INFORMATION
  Report Type: 
  Country: None (occurrence: None)
  Receive Date: 20101027
  Receipt Date: 20101020
  Transmission Date: 20110411
  Serious: Yes (Hospitalization, Other)
  Sender: FDA-Public Use
  Company Number: PHHO2010IT10663

PATIENT
  Sex: Male
  Weight: 85 kg

DRUGS (3)
  1. CERTICAN [Suspect]
     Indication: RENAL TRANSPLANT
     Dosage: 1.5 MG, QD
     Route: 048
     Dates: start: 20100619
  2. NEORAL [Concomitant]
     Indication: IMMUNOSUPPRESSION
     Dosage: UNK
  3. DELTACORTENE [Concomitant]
     Indication: IMMUNOSUPPRESSION
     Dosage: UNK

REACTIONS (8)
  - ABDOMINAL HERNIA [None]
  - ABDOMINAL HERNIA REPAIR [None]
  - ABDOMINAL PAIN [None]
  - BLOOD CREATININE INCREASED [None]
  - FLUID RETENTION [None]
  - POST PROCEDURAL URINE LEAK [None]
  - URETERIC DILATATION [None]
  - URETERIC REPAIR [None]
